FAERS Safety Report 8948138 (Version 1)
Quarter: 2012Q4

REPORT INFORMATION
  Report Type: Spontaneous
  Country: US (occurrence: None)
  Receive Date: 20121203
  Receipt Date: 20121203
  Transmission Date: 20130627
  Serious: Yes (Life-Threatening)
  Sender: FDA-Public Use
  Company Number: None

PATIENT
  Sex: Female
  Weight: 120.2 kg

DRUGS (12)
  1. VENLAFAXINE [Suspect]
     Indication: DEPRESSION
     Route: 048
     Dates: start: 20121104, end: 20121202
  2. VENLAFAXINE [Suspect]
     Indication: IRRITABLE BOWEL SYNDROME
     Route: 048
     Dates: start: 20121104, end: 20121202
  3. VENLAFAXINE [Suspect]
     Indication: ATRIAL FIBRILLATION
     Route: 048
     Dates: start: 20121104, end: 20121202
  4. WELLBUTRIN [Concomitant]
  5. SYNTHROID [Suspect]
  6. XANAX [Concomitant]
  7. AMTIZA [Concomitant]
  8. ALIGN [Concomitant]
  9. SECTRAL [Concomitant]
  10. HYCOSAMINE [Concomitant]
  11. POLYETHYLENE GLYCOL [Concomitant]
  12. ZOFRAN [Concomitant]

REACTIONS (8)
  - Atrial fibrillation [None]
  - Product substitution issue [None]
  - Discomfort [None]
  - Decreased activity [None]
  - Chest pain [None]
  - Dyspnoea [None]
  - Headache [None]
  - Product quality issue [None]
